FAERS Safety Report 25899366 (Version 1)
Quarter: 2025Q4

REPORT INFORMATION
  Report Type: Spontaneous
  Country: US (occurrence: US)
  Receive Date: 20251009
  Receipt Date: 20251009
  Transmission Date: 20260117
  Serious: Yes (Death, Other)
  Sender: SANDOZ
  Company Number: US-SANDOZ-SDZ2025US073182

PATIENT
  Age: 44 Year
  Sex: Female

DRUGS (1)
  1. FILGRASTIM [Suspect]
     Active Substance: FILGRASTIM
     Indication: Breast cancer female
     Dosage: (480 MCG/0.8 ML), OTHER (INJECT THE CONTENTS OF ONE SYRINGE (480MCG) SUBCUTANEOUSLY EVERY 24 HOURS F
     Route: 058

REACTIONS (1)
  - Death [Fatal]

NARRATIVE: CASE EVENT DATE: 20250924
